FAERS Safety Report 10517577 (Version 2)
Quarter: 2015Q2

REPORT INFORMATION
  Report Type: Report from Study
  Country: US (occurrence: US)
  Receive Date: 20141014
  Receipt Date: 20150618
  Transmission Date: 20150821
  Serious: Yes (Hospitalization)
  Sender: FDA-Public Use
  Company Number: US-GILEAD-2014-0118444

PATIENT
  Age: 87 Year
  Sex: Female

DRUGS (3)
  1. AMBRISENTAN [Suspect]
     Active Substance: AMBRISENTAN
     Indication: PULMONARY ARTERIAL HYPERTENSION
  2. AMBRISENTAN [Suspect]
     Active Substance: AMBRISENTAN
     Indication: MITRAL VALVE INCOMPETENCE
  3. AMBRISENTAN [Suspect]
     Active Substance: AMBRISENTAN
     Indication: PULMONARY HYPERTENSION

REACTIONS (1)
  - Bradycardia [Unknown]

NARRATIVE: CASE EVENT DATE: 20141009
